FAERS Safety Report 23783105 (Version 1)
Quarter: 2024Q2

REPORT INFORMATION
  Report Type: Spontaneous
  Country: HU (occurrence: HU)
  Receive Date: 20240425
  Receipt Date: 20240425
  Transmission Date: 20240716
  Serious: Yes (Other)
  Sender: FDA-Public Use
  Company Number: HU-Harrow Eye-2154995

PATIENT
  Age: 39 Year
  Sex: Female
  Weight: 59 kg

DRUGS (3)
  1. VIGAMOX [Suspect]
     Active Substance: MOXIFLOXACIN HYDROCHLORIDE
     Indication: Prophylaxis
     Route: 047
     Dates: start: 20240128, end: 20240201
  2. VITAMIN D [Concomitant]
     Active Substance: VITAMIN D NOS
  3. VITAMIN C [Concomitant]
     Active Substance: ASCORBIC ACID

REACTIONS (37)
  - Dry eye [Not Recovered/Not Resolved]
  - Drug ineffective [Unknown]
  - Urethritis noninfective [Not Recovered/Not Resolved]
  - Hypoaesthesia [Not Recovered/Not Resolved]
  - Photosensitivity reaction [Not Recovered/Not Resolved]
  - Rash [Not Recovered/Not Resolved]
  - Rash vesicular [Not Recovered/Not Resolved]
  - Ocular discomfort [Not Recovered/Not Resolved]
  - Asthenopia [Not Recovered/Not Resolved]
  - Eye irritation [Not Recovered/Not Resolved]
  - Pain [Not Recovered/Not Resolved]
  - Hypoaesthesia [Not Recovered/Not Resolved]
  - Feeling cold [Not Recovered/Not Resolved]
  - Ear discomfort [Not Recovered/Not Resolved]
  - Palpitations [Not Recovered/Not Resolved]
  - Rash [Recovered/Resolved]
  - Dry mouth [Not Recovered/Not Resolved]
  - Tendonitis [Unknown]
  - Gait disturbance [Not Recovered/Not Resolved]
  - Arthralgia [Not Recovered/Not Resolved]
  - Joint noise [Not Recovered/Not Resolved]
  - Chills [Recovered/Resolved]
  - Cough [Recovered/Resolved]
  - Vulvovaginal burning sensation [Not Recovered/Not Resolved]
  - Burning sensation [Not Recovered/Not Resolved]
  - Throat irritation [Recovered/Resolved]
  - Paraesthesia [Not Recovered/Not Resolved]
  - Paraesthesia oral [Unknown]
  - Eye irritation [Not Recovered/Not Resolved]
  - Burning sensation [Not Recovered/Not Resolved]
  - Ear discomfort [Not Recovered/Not Resolved]
  - Paraesthesia [Not Recovered/Not Resolved]
  - Back pain [Not Recovered/Not Resolved]
  - Feeling cold [Not Recovered/Not Resolved]
  - Joint noise [Not Recovered/Not Resolved]
  - Arthralgia [Not Recovered/Not Resolved]
  - Glaucoma [Not Recovered/Not Resolved]

NARRATIVE: CASE EVENT DATE: 20240128
